APPROVED DRUG PRODUCT: PREDNISOLONE
Active Ingredient: PREDNISOLONE
Strength: 5MG
Dosage Form/Route: TABLET;ORAL
Application: A215673 | Product #001 | TE Code: AB
Applicant: AUROBINDO PHARMA LTD
Approved: Mar 17, 2023 | RLD: No | RS: No | Type: RX